FAERS Safety Report 13409418 (Version 1)
Quarter: 2017Q2

REPORT INFORMATION
  Report Type: Spontaneous
  Country: US (occurrence: US)
  Receive Date: 20170406
  Receipt Date: 20170406
  Transmission Date: 20170830
  Serious: Yes (Other)
  Sender: FDA-Public Use
  Company Number: None

PATIENT
  Age: 78 Year
  Sex: Female

DRUGS (1)
  1. HEPARIN [Suspect]
     Active Substance: HEPARIN SODIUM
     Dosage: HEPARIN 1000 UNITS/ML, 10 ML VIAL

REACTIONS (3)
  - Coronary artery thrombosis [None]
  - Arterial stenosis [None]
  - Drug effect decreased [None]

NARRATIVE: CASE EVENT DATE: 20170213
